FAERS Safety Report 9765049 (Version 2)
Quarter: 2014Q1

REPORT INFORMATION
  Report Type: Spontaneous
  Country: US (occurrence: US)
  Receive Date: 20131217
  Receipt Date: 20140204
  Transmission Date: 20141002
  Serious: No
  Sender: FDA-Public Use
  Company Number: US-PFIZER INC-2013359975

PATIENT
  Age: 34 Year
  Sex: Female

DRUGS (8)
  1. FLECTOR [Suspect]
     Indication: NECK PAIN
     Dosage: PATCH TO AFFECTED AREA Q 12 H
     Route: 062
     Dates: start: 20131115, end: 20131118
  2. FLECTOR [Suspect]
     Indication: LIMB DISCOMFORT
  3. VITAMIN D3 [Concomitant]
     Indication: VITAMIN D DECREASED
     Dosage: 1000 IU, UNK
  4. LISINOPRIL [Concomitant]
     Dosage: UNK
  5. PROVENTIL /OLD FORM/ [Concomitant]
     Dosage: UNK
  6. ADVAIR [Concomitant]
     Dosage: UNK
  7. FLOVENT [Concomitant]
     Dosage: UNK
  8. PRILOSEC [Concomitant]
     Indication: ABDOMINAL DISCOMFORT
     Dosage: UNK, PRN

REACTIONS (3)
  - Dizziness [Recovered/Resolved]
  - Nausea [Recovered/Resolved]
  - Somnolence [Recovered/Resolved]
